FAERS Safety Report 8135382-0 (Version None)
Quarter: 2012Q1

REPORT INFORMATION
  Report Type: 
  Country: None (occurrence: None)
  Receive Date: 20120214
  Receipt Date: 20120130
  Transmission Date: 20120608
  Serious: No
  Sender: FDA-Public Use
  Company Number: JP-JNJFOC-20120202177

PATIENT
  Sex: Female

DRUGS (7)
  1. FLOMOX [Concomitant]
     Route: 048
     Dates: start: 20111216
  2. ZYRTEC [Suspect]
     Route: 048
  3. ASVERIN [Concomitant]
     Route: 048
     Dates: start: 20111216
  4. MUCODYNE [Concomitant]
     Route: 048
     Dates: start: 20111216
  5. ZYRTEC [Suspect]
     Indication: RHINITIS ALLERGIC
     Route: 048
     Dates: start: 20111216, end: 20111223
  6. ONON [Concomitant]
     Route: 048
     Dates: start: 20111216
  7. MEPTIN [Concomitant]
     Route: 048
     Dates: start: 20111216

REACTIONS (4)
  - CRYING [None]
  - COMPULSIONS [None]
  - AGITATION [None]
  - RESTLESSNESS [None]
